FAERS Safety Report 6307453-2 (Version None)
Quarter: 2009Q3

REPORT INFORMATION
  Report Type: 
  Country: None (occurrence: None)
  Receive Date: 20090813
  Receipt Date: 20090626
  Transmission Date: 20100115
  Serious: No
  Sender: FDA-Public Use
  Company Number: US-BRISTOL-MYERS SQUIBB COMPANY-14683262

PATIENT

DRUGS (2)
  1. IXEMPRA KIT [Suspect]
     Indication: OVARIAN CANCER
  2. IXEMPRA KIT [Suspect]
     Indication: GASTROINTESTINAL CARCINOMA

REACTIONS (1)
  - ARTHRALGIA [None]
